FAERS Safety Report 16415132 (Version 1)
Quarter: 2019Q2

REPORT INFORMATION
  Report Type: Spontaneous
  Country: US (occurrence: US)
  Receive Date: 20190611
  Receipt Date: 20190611
  Transmission Date: 20190711
  Serious: Yes (Other)
  Sender: FDA-Public Use
  Company Number: US-PFIZER INC-2019187148

PATIENT
  Age: 19 Year
  Sex: Female

DRUGS (3)
  1. INFLIXIMAB [Suspect]
     Active Substance: INFLIXIMAB
     Indication: CROHN^S DISEASE
     Dosage: UNK
     Route: 065
  2. TOFACITINIB [Suspect]
     Active Substance: TOFACITINIB
     Indication: CROHN^S DISEASE
     Dosage: 10 MG, 2X/DAY (ONE MONTH)
     Route: 065
  3. VEDOLIZUMAB [Suspect]
     Active Substance: VEDOLIZUMAB
     Indication: CROHN^S DISEASE
     Dosage: UNK (Q8 WEEKS FOR 4 MONTHS)
     Route: 065

REACTIONS (2)
  - Anaphylactic reaction [Unknown]
  - Upper respiratory tract infection [Recovered/Resolved]
